FAERS Safety Report 7408367-7 (Version None)
Quarter: 2011Q2

REPORT INFORMATION
  Report Type: 
  Country: None (occurrence: None)
  Receive Date: 20110412
  Receipt Date: 20110202
  Transmission Date: 20111010
  Serious: Yes (Other)
  Sender: FDA-Public Use
  Company Number: GB-CELGENEUS-167-20785-11020345

PATIENT
  Sex: Female

DRUGS (5)
  1. THALIDOMIDE [Suspect]
     Indication: MULTIPLE MYELOMA
     Route: 048
     Dates: start: 20070801, end: 20080101
  2. THALIDOMIDE [Suspect]
     Route: 048
     Dates: start: 20080101, end: 20080601
  3. CYCLOPHOSPHAMIDE [Concomitant]
     Indication: MULTIPLE MYELOMA
     Route: 065
     Dates: start: 20070801, end: 20080101
  4. DEXAMETHASONE [Concomitant]
     Route: 065
     Dates: start: 20080901, end: 20090201
  5. DEXAMETHASONE [Concomitant]
     Indication: MULTIPLE MYELOMA
     Route: 065
     Dates: start: 20070801, end: 20080101

REACTIONS (2)
  - PULMONARY TUBERCULOSIS [None]
  - MONOCLONAL IMMUNOGLOBULIN PRESENT [None]
